FAERS Safety Report 10374207 (Version 1)
Quarter: 2014Q3

REPORT INFORMATION
  Report Type: Report from Study
  Country: US (occurrence: US)
  Receive Date: 20140811
  Receipt Date: 20140811
  Transmission Date: 20150326
  Serious: Yes (Hospitalization)
  Sender: FDA-Public Use
  Company Number: US-ALEXION PHARMACEUTICALS INC.-A201305458

PATIENT

DRUGS (1)
  1. SOLIRIS [Suspect]
     Active Substance: ECULIZUMAB
     Indication: HAEMOLYTIC URAEMIC SYNDROME
     Dosage: UNK
     Route: 042

REACTIONS (10)
  - Unevaluable event [Unknown]
  - Extubation [Unknown]
  - Gait disturbance [Unknown]
  - Platelet count decreased [Unknown]
  - Fatigue [Unknown]
  - Blood creatinine increased [Unknown]
  - Depressed mood [Unknown]
  - Slow response to stimuli [Unknown]
  - Activities of daily living impaired [Unknown]
  - Delirium [Unknown]
